FAERS Safety Report 16706167 (Version 5)
Quarter: 2020Q1

REPORT INFORMATION
  Report Type: Spontaneous
  Country: US (occurrence: US)
  Receive Date: 20190815
  Receipt Date: 20200224
  Transmission Date: 20200409
  Serious: Yes (Other)
  Sender: FDA-Public Use
  Company Number: US-PFIZER INC-2017232598

PATIENT
  Age: 67 Year
  Sex: Male
  Weight: 90.7 kg

DRUGS (5)
  1. GENOTROPIN MQ [Suspect]
     Active Substance: SOMATROPIN
     Dosage: 0.8 MG, DAILY
     Dates: start: 200511
  2. GENOTROPIN MQ [Suspect]
     Active Substance: SOMATROPIN
     Dosage: 0.8 MG, DAILY
  3. GENOTROPIN MQ [Suspect]
     Active Substance: SOMATROPIN
     Dosage: 05 MG, DAILY
  4. MOBIC [Concomitant]
     Active Substance: MELOXICAM
     Indication: SPINE MALFORMATION
     Dosage: UNK
  5. VOLMAX [Concomitant]
     Active Substance: ALBUTEROL SULFATE
     Indication: PROSTATOMEGALY
     Dosage: UNK

REACTIONS (5)
  - Loss of personal independence in daily activities [Unknown]
  - Malaise [Unknown]
  - Multiple sclerosis [Unknown]
  - Product dose omission [Unknown]
  - Hypoacusis [Unknown]
